FAERS Safety Report 12376471 (Version 1)
Quarter: 2016Q2

REPORT INFORMATION
  Report Type: Spontaneous
  Country: AU (occurrence: AU)
  Receive Date: 20160517
  Receipt Date: 20160517
  Transmission Date: 20160815
  Serious: Yes (Hospitalization, Disabling, Other)
  Sender: FDA-Public Use
  Company Number: AU-PFIZER INC-2016187160

PATIENT
  Age: 83 Year
  Sex: Female
  Weight: 90.5 kg

DRUGS (13)
  1. OSTEO /00751501/ [Concomitant]
     Active Substance: CALCIUM
     Dosage: UNK
  2. ISOMONIT [Concomitant]
     Dosage: UNK
  3. IRBESARTAN. [Concomitant]
     Active Substance: IRBESARTAN
     Dosage: UNK
  4. THYROXINE [Concomitant]
     Active Substance: LEVOTHYROXINE
     Dosage: UNK
  5. VITAMIN D3 [Concomitant]
     Active Substance: CHOLECALCIFEROL
     Dosage: UNK
  6. PANADOL /00020001/ [Concomitant]
     Dosage: UNK
  7. SPIRACTIN /00006201/ [Concomitant]
     Dosage: UNK
  8. LYRICA [Suspect]
     Active Substance: PREGABALIN
     Indication: NEUROPATHY PERIPHERAL
     Dosage: 175 MG, 2X/DAY
     Route: 048
     Dates: start: 2015
  9. ACIMAX [Concomitant]
     Active Substance: OMEPRAZOLE
     Dosage: UNK
  10. MACUVISION [Concomitant]
     Dosage: UNK
  11. PROGYNOVA /00045401/ [Concomitant]
     Dosage: UNK
  12. SOTALOL. [Concomitant]
     Active Substance: SOTALOL
     Dosage: UNK
  13. LYRICA [Suspect]
     Active Substance: PREGABALIN
     Indication: NEURALGIA

REACTIONS (3)
  - Cellulitis [Not Recovered/Not Resolved]
  - Rash generalised [Recovered/Resolved]
  - Rash erythematous [Not Recovered/Not Resolved]

NARRATIVE: CASE EVENT DATE: 201511
